FAERS Safety Report 7754211-8 (Version None)
Quarter: 2011Q3

REPORT INFORMATION
  Report Type: 
  Country: None (occurrence: None)
  Receive Date: 20110913
  Receipt Date: 20110829
  Transmission Date: 20111222
  Serious: Yes (Other)
  Sender: FDA-Public Use
  Company Number: 2523595-2011-00019

PATIENT
  Sex: Male

DRUGS (5)
  1. MYCOPHENOLATE MOFETIL (CELLCEPT) [Concomitant]
  2. UVADEX [Suspect]
     Indication: GRAFT VERSUS HOST DISEASE
     Dosage: 4.13ML, 4.13ML
     Dates: start: 20110825
  3. UVADEX [Suspect]
     Indication: GRAFT VERSUS HOST DISEASE
     Dosage: 4.13ML, 4.13ML
     Dates: start: 20110826
  4. BREDNISOLON [Concomitant]
  5. PROGRAF [Concomitant]

REACTIONS (2)
  - DYSPNOEA [None]
  - UNEVALUABLE EVENT [None]
